FAERS Safety Report 21635182 (Version 1)
Quarter: 2022Q4

REPORT INFORMATION
  Report Type: Other
  Country: None (occurrence: GR)
  Receive Date: 20221123
  Receipt Date: 20221123
  Transmission Date: 20230112
  Serious: Yes (Other)
  Sender: FDA-Public Use
  Company Number: GR-B.Braun Medical Inc.-2135204

PATIENT
  Age: 70 Year
  Sex: Female

DRUGS (2)
  1. MANNITOL [Suspect]
     Active Substance: MANNITOL
  2. CORTISONE [Suspect]
     Active Substance: CORTISONE

REACTIONS (1)
  - Drug ineffective [Unknown]
